FAERS Safety Report 23488936 (Version 1)
Quarter: 2024Q1

REPORT INFORMATION
  Report Type: Spontaneous
  Country: US (occurrence: US)
  Receive Date: 20240206
  Receipt Date: 20240206
  Transmission Date: 20240410
  Serious: No
  Sender: FDA-Public Use
  Company Number: US-TEVA-VS-3151561

PATIENT
  Sex: Female

DRUGS (15)
  1. COPAXONE [Suspect]
     Active Substance: GLATIRAMER ACETATE
     Indication: Product used for unknown indication
     Dosage: FORM STRENGTH AND DOSE: UNKNOWN
     Route: 065
  2. BENADRYL [Concomitant]
     Active Substance: DIPHENHYDRAMINE HYDROCHLORIDE
  3. VITAMIN D [Concomitant]
     Active Substance: VITAMIN D NOS
  4. COPAXONE [Concomitant]
     Active Substance: GLATIRAMER ACETATE
  5. ALBUTEROL [Concomitant]
     Active Substance: ALBUTEROL
  6. DRAMAMINE [Concomitant]
     Active Substance: DIMENHYDRINATE
  7. AMITRIPTYLINE [Concomitant]
     Active Substance: AMITRIPTYLINE
  8. TYLENOL [Concomitant]
     Active Substance: ACETAMINOPHEN
  9. REBIF [Concomitant]
     Active Substance: INTERFERON BETA-1A
  10. FLONASE [Concomitant]
     Active Substance: FLUTICASONE PROPIONATE
  11. XANAX [Concomitant]
     Active Substance: ALPRAZOLAM
  12. CLONAZEPAM [Concomitant]
     Active Substance: CLONAZEPAM
  13. AMBIEN [Concomitant]
     Active Substance: ZOLPIDEM TARTRATE
  14. DIETARY SUPPLEMENT [Concomitant]
     Active Substance: DIETARY SUPPLEMENT
  15. LEVOTHYROXINE [Concomitant]
     Active Substance: LEVOTHYROXINE\LEVOTHYROXINE SODIUM

REACTIONS (2)
  - Drug hypersensitivity [Unknown]
  - Illness [Unknown]
